FAERS Safety Report 9438907 (Version 1)
Quarter: 2013Q3

REPORT INFORMATION
  Report Type: Spontaneous
  Country: US (occurrence: US)
  Receive Date: 20130802
  Receipt Date: 20130802
  Transmission Date: 20140515
  Serious: Yes (Other)
  Sender: FDA-Public Use
  Company Number: US-TEVA-422136USA

PATIENT
  Sex: Female

DRUGS (1)
  1. CLARAVIS [Suspect]
     Dosage: 30MG AND 40MG

REACTIONS (8)
  - Morbid thoughts [Unknown]
  - Depressed mood [Unknown]
  - Mood altered [Unknown]
  - Visual impairment [Unknown]
  - Dry eye [Unknown]
  - Lip dry [Unknown]
  - Headache [Unknown]
  - Pain [Unknown]
